FAERS Safety Report 19115560 (Version 5)
Quarter: 2022Q4

REPORT INFORMATION
  Report Type: Other
  Country: IE (occurrence: IE)
  Receive Date: 20210409
  Receipt Date: 20221010
  Transmission Date: 20230113
  Serious: Yes (Death, Hospitalization, Other)
  Sender: FDA-Public Use
  Company Number: GB-CELGENE-GBR-20200301869

PATIENT

DRUGS (278)
  1. DEXAMETHASONE [Suspect]
     Active Substance: DEXAMETHASONE
     Indication: Plasma cell myeloma
     Dosage: 20 MG, 1 DOSE WEEKLY
     Route: 048
     Dates: start: 20180821, end: 20190101
  2. DEXAMETHASONE [Suspect]
     Active Substance: DEXAMETHASONE
     Dosage: 20 MG, 1 DOSE WEEKLY
     Route: 048
     Dates: start: 20190906, end: 20191010
  3. DEXAMETHASONE [Suspect]
     Active Substance: DEXAMETHASONE
     Dosage: 20 MG, 1 DOSE WEEKLY
     Route: 048
     Dates: start: 20191213, end: 20191228
  4. DEXAMETHASONE [Suspect]
     Active Substance: DEXAMETHASONE
     Dosage: 20 MG, 1 DOSE WEEKLY
     Route: 048
     Dates: start: 20190614, end: 20190830
  5. DEXAMETHASONE [Suspect]
     Active Substance: DEXAMETHASONE
     Dosage: 20 MG, 1 DOSE WEEKLY
     Route: 048
     Dates: start: 20190906, end: 20191228
  6. DEXAMETHASONE [Suspect]
     Active Substance: DEXAMETHASONE
     Dosage: UNK
     Route: 048
     Dates: start: 20180917
  7. DEXAMETHASONE [Suspect]
     Active Substance: DEXAMETHASONE
     Dosage: UNK
     Route: 065
     Dates: start: 20180809
  8. DEXAMETHASONE [Suspect]
     Active Substance: DEXAMETHASONE
     Dosage: 20 MG, 1 DOSE WEEKLY
     Route: 048
     Dates: start: 20191228
  9. DEXAMETHASONE [Suspect]
     Active Substance: DEXAMETHASONE
     Dosage: UNK
     Route: 065
     Dates: start: 20181015
  10. DEXAMETHASONE [Suspect]
     Active Substance: DEXAMETHASONE
     Dosage: UNK
     Route: 048
     Dates: start: 20181112
  11. DEXAMETHASONE [Suspect]
     Active Substance: DEXAMETHASONE
     Dosage: UNK
     Route: 048
     Dates: start: 20190809
  12. DEXAMETHASONE [Suspect]
     Active Substance: DEXAMETHASONE
     Dosage: UNK
     Route: 048
     Dates: start: 20181210
  13. DEXAMETHASONE [Suspect]
     Active Substance: DEXAMETHASONE
     Dosage: UNK
     Route: 065
  14. DEXAMETHASONE [Suspect]
     Active Substance: DEXAMETHASONE
     Dosage: 20 MG
     Route: 048
     Dates: start: 20190123
  15. DEXAMETHASONE [Suspect]
     Active Substance: DEXAMETHASONE
     Dosage: 20 MG, 1 DOSE WEEKLY
     Route: 048
     Dates: start: 20191213, end: 20191228
  16. DEXAMETHASONE [Suspect]
     Active Substance: DEXAMETHASONE
     Dosage: 20 MG
     Route: 048
     Dates: start: 20181211, end: 20190101
  17. DEXAMETHASONE [Suspect]
     Active Substance: DEXAMETHASONE
     Dosage: 20 MG
     Route: 048
     Dates: start: 20181016, end: 20191105
  18. DEXAMETHASONE [Suspect]
     Active Substance: DEXAMETHASONE
     Dosage: UNK
     Route: 065
  19. DEXAMETHASONE [Suspect]
     Active Substance: DEXAMETHASONE
     Dosage: UNK
     Route: 048
     Dates: start: 20190809
  20. DEXAMETHASONE [Suspect]
     Active Substance: DEXAMETHASONE
     Dosage: UNK
     Route: 065
     Dates: start: 20181015
  21. DEXAMETHASONE [Suspect]
     Active Substance: DEXAMETHASONE
     Dosage: UNK
     Route: 065
     Dates: start: 20181015
  22. DEXAMETHASONE [Suspect]
     Active Substance: DEXAMETHASONE
     Dosage: 20 MG, 1 DOSE WEEKLY
     Route: 048
     Dates: start: 20180821, end: 20190101
  23. DEXAMETHASONE [Suspect]
     Active Substance: DEXAMETHASONE
     Dosage: UNK
     Route: 048
     Dates: start: 20180917
  24. DEXAMETHASONE [Suspect]
     Active Substance: DEXAMETHASONE
     Dosage: 20 MG, 1 DOSE WEEKLY
     Route: 048
     Dates: start: 20190906, end: 20191228
  25. DEXAMETHASONE [Suspect]
     Active Substance: DEXAMETHASONE
     Dosage: 20 MG
     Route: 048
     Dates: start: 20180917, end: 20181007
  26. DEXAMETHASONE [Suspect]
     Active Substance: DEXAMETHASONE
     Dosage: UNK
     Route: 048
     Dates: start: 20181112
  27. DEXAMETHASONE [Suspect]
     Active Substance: DEXAMETHASONE
     Dosage: 20 MILLIGRAM, 1/WEEK
     Route: 048
     Dates: start: 20181113, end: 20181203
  28. CYCLOPHOSPHAMIDE [Suspect]
     Active Substance: CYCLOPHOSPHAMIDE
     Indication: Plasma cell myeloma
     Dosage: 300 MG, QD
     Route: 048
     Dates: start: 20190907, end: 20190907
  29. CYCLOPHOSPHAMIDE [Suspect]
     Active Substance: CYCLOPHOSPHAMIDE
     Dosage: 300 MG, 1 DOSE WEEKLY (POWDER FOR SOLUTION FOR INFUSION)
     Route: 048
     Dates: start: 20191213, end: 20191228
  30. CYCLOPHOSPHAMIDE [Suspect]
     Active Substance: CYCLOPHOSPHAMIDE
     Dosage: 7800 MG
     Route: 065
     Dates: start: 2019, end: 20191213
  31. CYCLOPHOSPHAMIDE [Suspect]
     Active Substance: CYCLOPHOSPHAMIDE
     Dosage: 36.59 MG
     Route: 048
     Dates: start: 20191213, end: 20191228
  32. CYCLOPHOSPHAMIDE [Suspect]
     Active Substance: CYCLOPHOSPHAMIDE
     Dosage: 300 MG, QD
     Route: 048
     Dates: start: 20191010
  33. CYCLOPHOSPHAMIDE [Suspect]
     Active Substance: CYCLOPHOSPHAMIDE
     Dosage: 11100 MG
     Route: 065
     Dates: start: 20191213
  34. CYCLOPHOSPHAMIDE [Suspect]
     Active Substance: CYCLOPHOSPHAMIDE
     Dosage: 7800 MG
     Route: 065
     Dates: start: 20191213
  35. CYCLOPHOSPHAMIDE [Suspect]
     Active Substance: CYCLOPHOSPHAMIDE
     Dosage: 4 MG, 1 DOSE WEEKLY
     Route: 048
     Dates: start: 20191226
  36. CYCLOPHOSPHAMIDE [Suspect]
     Active Substance: CYCLOPHOSPHAMIDE
     Dosage: 4 MG, 1 DOSE WEEKLY
     Route: 048
     Dates: start: 20191213, end: 20191226
  37. CYCLOPHOSPHAMIDE [Suspect]
     Active Substance: CYCLOPHOSPHAMIDE
     Dosage: UNK
     Route: 048
     Dates: start: 20181015
  38. REVLIMID [Suspect]
     Active Substance: LENALIDOMIDE
     Indication: Plasma cell myeloma
     Dosage: 25 MG
     Route: 048
     Dates: start: 20180821, end: 20180909
  39. REVLIMID [Suspect]
     Active Substance: LENALIDOMIDE
     Dosage: 25 MG
     Route: 048
     Dates: start: 20181015, end: 20181104
  40. REVLIMID [Suspect]
     Active Substance: LENALIDOMIDE
     Dosage: 25 MG
     Route: 048
     Dates: start: 20181112, end: 20181202
  41. REVLIMID [Suspect]
     Active Substance: LENALIDOMIDE
     Dosage: 25 MG, QD
     Route: 048
     Dates: start: 20190906, end: 20191010
  42. REVLIMID [Suspect]
     Active Substance: LENALIDOMIDE
     Dosage: 25 MG
     Route: 048
     Dates: start: 20181210, end: 20181231
  43. REVLIMID [Suspect]
     Active Substance: LENALIDOMIDE
     Dosage: 25 MG
     Route: 048
     Dates: start: 20180917, end: 20181007
  44. REVLIMID [Suspect]
     Active Substance: LENALIDOMIDE
     Dosage: 25 MG, QD
     Route: 048
     Dates: start: 20191213, end: 20191231
  45. REVLIMID [Suspect]
     Active Substance: LENALIDOMIDE
     Dosage: 25 MG, QD
     Route: 048
     Dates: start: 20191112, end: 20191202
  46. REVLIMID [Suspect]
     Active Substance: LENALIDOMIDE
     Dosage: 25 MG, QD
     Route: 048
     Dates: start: 20190712, end: 20190801
  47. REVLIMID [Suspect]
     Active Substance: LENALIDOMIDE
     Dosage: 25 MG, QD
     Route: 048
     Dates: start: 20190909, end: 20190929
  48. REVLIMID [Suspect]
     Active Substance: LENALIDOMIDE
     Dosage: 25 MG, QD
     Route: 048
     Dates: start: 20191213
  49. REVLIMID [Suspect]
     Active Substance: LENALIDOMIDE
     Dosage: UNK
     Route: 065
     Dates: start: 20191231
  50. IXAZOMIB [Suspect]
     Active Substance: IXAZOMIB
     Indication: Plasma cell myeloma
     Dosage: 4 MG, 1 DOSE WEEKLY
     Route: 048
     Dates: start: 20190629, end: 20190713
  51. IXAZOMIB [Suspect]
     Active Substance: IXAZOMIB
     Dosage: 4 MG, 1 DOSE WEEKLY
     Route: 048
     Dates: start: 20190713
  52. IXAZOMIB [Suspect]
     Active Substance: IXAZOMIB
     Dosage: 4 MG, 1 DOSE WEEKLY
     Route: 048
     Dates: start: 20190615, end: 20190622
  53. IXAZOMIB [Suspect]
     Active Substance: IXAZOMIB
     Dosage: 4 MG, 1 DOSE WEEKLY
     Route: 048
     Dates: start: 20190803, end: 20190809
  54. IXAZOMIB [Suspect]
     Active Substance: IXAZOMIB
     Dosage: 4 MG, 1 DOSE WEEKLY
     Route: 048
     Dates: start: 20190810, end: 20190824
  55. IXAZOMIB [Suspect]
     Active Substance: IXAZOMIB
     Dosage: 4 MG, 1 DOSE WEEKLY
     Route: 048
     Dates: start: 20190620, end: 20190802
  56. IXAZOMIB [Suspect]
     Active Substance: IXAZOMIB
     Dosage: 4 MG, 1 DOSE WEEKLY
     Route: 048
     Dates: start: 20191213, end: 20191226
  57. IXAZOMIB [Suspect]
     Active Substance: IXAZOMIB
     Dosage: 800 MG
     Route: 048
     Dates: start: 20191231
  58. IXAZOMIB [Suspect]
     Active Substance: IXAZOMIB
     Dosage: UNK
     Route: 048
     Dates: start: 20191231
  59. IXAZOMIB [Suspect]
     Active Substance: IXAZOMIB
     Dosage: 47.5 MILLIGRAM, QW
     Route: 048
     Dates: start: 20190615
  60. IXAZOMIB [Suspect]
     Active Substance: IXAZOMIB
     Dosage: 4 MG, 1 DOSE WEEKLY
     Route: 048
     Dates: start: 20190803, end: 20190809
  61. IXAZOMIB [Suspect]
     Active Substance: IXAZOMIB
     Dosage: 4 MILLIGRAM
     Route: 048
     Dates: start: 20190803, end: 20190809
  62. IXAZOMIB [Suspect]
     Active Substance: IXAZOMIB
     Dosage: 4 MG
     Route: 048
     Dates: start: 20190810, end: 20190824
  63. IXAZOMIB [Suspect]
     Active Substance: IXAZOMIB
     Dosage: 4 MG, 1 DOSE WEEKLY
     Route: 048
     Dates: start: 20190615, end: 20190615
  64. IXAZOMIB [Suspect]
     Active Substance: IXAZOMIB
     Dosage: 4 MG, 1 DOSE WEEKLY
     Route: 048
     Dates: start: 20190615, end: 20190615
  65. IXAZOMIB [Suspect]
     Active Substance: IXAZOMIB
     Dosage: UNK
     Route: 048
     Dates: start: 20191231
  66. IXAZOMIB [Suspect]
     Active Substance: IXAZOMIB
     Dosage: UNK
     Route: 048
     Dates: start: 20191231
  67. IXAZOMIB [Suspect]
     Active Substance: IXAZOMIB
     Dosage: 4 MG, 1 DOSE WEEKLY
     Route: 048
     Dates: start: 20191213, end: 20191226
  68. IXAZOMIB [Suspect]
     Active Substance: IXAZOMIB
     Dosage: 4 MG, 1 DOSE WEEKLY
     Route: 048
     Dates: start: 20190629, end: 20190713
  69. IXAZOMIB [Suspect]
     Active Substance: IXAZOMIB
     Dosage: 4 MG, 1 DOSE WEEKLY
     Route: 048
     Dates: start: 20190620, end: 20190802
  70. IXAZOMIB [Suspect]
     Active Substance: IXAZOMIB
     Dosage: 4 MG, 1 DOSE WEEKLY
     Route: 048
     Dates: start: 20190629, end: 20190713
  71. IXAZOMIB [Suspect]
     Active Substance: IXAZOMIB
     Dosage: 4 MG, 1 DOSE WEEKLY
     Route: 048
     Dates: start: 20190629, end: 20190713
  72. IXAZOMIB [Suspect]
     Active Substance: IXAZOMIB
     Dosage: 4 MG, 1 DOSE WEEKLY
     Route: 048
     Dates: start: 20190803, end: 20190809
  73. IXAZOMIB [Suspect]
     Active Substance: IXAZOMIB
     Dosage: 800 MG
     Route: 048
     Dates: start: 20191231
  74. IXAZOMIB [Suspect]
     Active Substance: IXAZOMIB
     Dosage: 4 MG, 1 DOSE WEEKLY
     Route: 048
     Dates: start: 20190615, end: 20190622
  75. IXAZOMIB [Suspect]
     Active Substance: IXAZOMIB
     Dosage: 4 MG, 1 DOSE WEEKLY
     Route: 048
     Dates: start: 20190615, end: 20190622
  76. IXAZOMIB [Suspect]
     Active Substance: IXAZOMIB
     Dosage: 4 MILLIGRAM
     Route: 048
     Dates: start: 20190803, end: 20190809
  77. IXAZOMIB [Suspect]
     Active Substance: IXAZOMIB
     Dosage: 4 MG, 1 DOSE WEEKLY
     Route: 048
     Dates: start: 20190629, end: 20190713
  78. LIDOCAINE [Concomitant]
     Active Substance: LIDOCAINE
     Indication: Tongue coated
     Dosage: 30 ML, QD
     Route: 048
     Dates: start: 20191116, end: 20191220
  79. LIDOCAINE [Concomitant]
     Active Substance: LIDOCAINE
     Dosage: 90 ML, QD
     Route: 048
     Dates: start: 20191116, end: 20191220
  80. LIDOCAINE [Concomitant]
     Active Substance: LIDOCAINE
     Dosage: UNK, QD
     Route: 065
     Dates: start: 20190103, end: 20191011
  81. LIDOCAINE [Concomitant]
     Active Substance: LIDOCAINE
     Dosage: 90 ML, QD
     Route: 048
     Dates: start: 20191116, end: 20191220
  82. TRIMETHOPRIM [Concomitant]
     Active Substance: TRIMETHOPRIM
     Indication: Antifungal prophylaxis
     Dosage: 480 MG, QD
     Route: 048
     Dates: start: 20090111
  83. TRIMETHOPRIM [Concomitant]
     Active Substance: TRIMETHOPRIM
     Indication: Prophylaxis
     Dosage: 10 DOSAGE FORM
     Route: 048
     Dates: start: 20191011
  84. TRIMETHOPRIM [Concomitant]
     Active Substance: TRIMETHOPRIM
     Dosage: 480 MG, QD
     Route: 048
     Dates: start: 20180817, end: 20191015
  85. TRIMETHOPRIM [Concomitant]
     Active Substance: TRIMETHOPRIM
     Dosage: UNK UNK, QD
     Route: 048
     Dates: start: 20190102, end: 20191015
  86. TRIMETHOPRIM [Concomitant]
     Active Substance: TRIMETHOPRIM
     Dosage: 480 MG, QD
     Route: 048
     Dates: start: 20091011
  87. TRIMETHOPRIM [Concomitant]
     Active Substance: TRIMETHOPRIM
     Dosage: UNK
     Route: 065
     Dates: start: 20191011
  88. PANTOPRAZOLE [Concomitant]
     Active Substance: PANTOPRAZOLE
     Indication: Prophylaxis
     Dosage: 20 MG, QD
     Route: 048
     Dates: start: 20190102, end: 20191015
  89. PANTOPRAZOLE [Concomitant]
     Active Substance: PANTOPRAZOLE
     Dosage: 80 MG, QD
     Route: 048
     Dates: start: 20191016
  90. PANTOPRAZOLE [Concomitant]
     Active Substance: PANTOPRAZOLE
     Dosage: 20 MG, QD
     Route: 048
     Dates: start: 20190102, end: 20190102
  91. PANTOPRAZOLE [Concomitant]
     Active Substance: PANTOPRAZOLE
     Dosage: UNK, QD
     Route: 048
     Dates: start: 20191020, end: 20191020
  92. PANTOPRAZOLE [Concomitant]
     Active Substance: PANTOPRAZOLE
     Dosage: 40 MILLIGRAM, BID (80 MG, QD)
     Route: 048
     Dates: start: 20191016
  93. NYSTATIN [Concomitant]
     Active Substance: NYSTATIN
     Indication: Tongue coated
     Dosage: 1 DOSAGE FORM
     Route: 048
     Dates: start: 20190104
  94. NYSTATIN [Concomitant]
     Active Substance: NYSTATIN
     Indication: Prophylaxis
     Dosage: 3 ML, TID
     Route: 048
     Dates: start: 20191116, end: 20191220
  95. NYSTATIN [Concomitant]
     Active Substance: NYSTATIN
     Dosage: UNK
     Route: 048
     Dates: start: 20190104
  96. NYSTATIN [Concomitant]
     Active Substance: NYSTATIN
     Dosage: UNK, 420 MILLILITRE
     Route: 048
  97. NYSTATIN [Concomitant]
     Active Substance: NYSTATIN
     Dosage: 1 DOSAGE FORM
     Route: 048
     Dates: start: 20190104
  98. NYSTATIN [Concomitant]
     Active Substance: NYSTATIN
     Dosage: 1 DOSAGE FORM
     Route: 048
     Dates: start: 20190104
  99. NYSTATIN [Concomitant]
     Active Substance: NYSTATIN
     Dosage: 9 MG, QD
     Route: 048
     Dates: start: 20191116, end: 20191220
  100. NYSTATIN [Concomitant]
     Active Substance: NYSTATIN
     Dosage: UNK
     Route: 048
     Dates: start: 20190104
  101. NYSTATIN [Concomitant]
     Active Substance: NYSTATIN
     Dosage: UNK
     Route: 065
  102. NYSTATIN [Concomitant]
     Active Substance: NYSTATIN
     Dosage: UNK
     Route: 065
  103. NYSTATIN [Concomitant]
     Active Substance: NYSTATIN
     Dosage: 1 MILLILITER, TID (3 ML, QD)
     Route: 048
     Dates: start: 20191116, end: 20191220
  104. NYSTATIN [Concomitant]
     Active Substance: NYSTATIN
     Dosage: 1 DOSAGE FORM
     Route: 048
     Dates: start: 20190104
  105. ASPIRIN [Concomitant]
     Active Substance: ASPIRIN
     Indication: Prophylaxis
     Dosage: 75 MG, QD
     Route: 048
  106. ASPIRIN [Concomitant]
     Active Substance: ASPIRIN
     Indication: Anaemia
     Dosage: 75 MILLILITER 30 ML, QD (30 MILLILITER)
     Route: 048
  107. ASPIRIN [Concomitant]
     Active Substance: ASPIRIN
     Dosage: 75 MG, QD
     Route: 048
  108. PRO CAL SHOT [Concomitant]
     Indication: Malnutrition
     Dosage: 90 ML
     Route: 048
     Dates: start: 20190103
  109. MEGACE [Concomitant]
     Active Substance: MEGESTROL ACETATE
     Indication: Malnutrition
     Dosage: 15 ML, QD
     Route: 048
     Dates: start: 20191019
  110. MEGACE [Concomitant]
     Active Substance: MEGESTROL ACETATE
     Dosage: 15 ML, QD
     Route: 048
     Dates: start: 20191011
  111. MEGACE [Concomitant]
     Active Substance: MEGESTROL ACETATE
     Dosage: 7.5 ML, QD
     Route: 048
     Dates: start: 20191011
  112. MEGACE [Concomitant]
     Active Substance: MEGESTROL ACETATE
     Dosage: 15 ML, QD
     Route: 048
     Dates: start: 20191011
  113. VITAMIN D NOS [Concomitant]
     Active Substance: VITAMIN D NOS
     Indication: Malnutrition
     Dosage: UNK UNK, QD
     Route: 048
     Dates: start: 20190102, end: 20191029
  114. VITAMIN D NOS [Concomitant]
     Active Substance: VITAMIN D NOS
     Indication: Prophylaxis
     Dosage: UNK
     Route: 048
     Dates: start: 20190102, end: 20190129
  115. VITAMIN D NOS [Concomitant]
     Active Substance: VITAMIN D NOS
     Dosage: UNK, BID
     Route: 048
     Dates: start: 20190103, end: 20191011
  116. VITAMIN D NOS [Concomitant]
     Active Substance: VITAMIN D NOS
     Dosage: UNK
     Route: 048
     Dates: start: 20190102, end: 20190129
  117. VITAMIN D NOS [Concomitant]
     Active Substance: VITAMIN D NOS
     Dosage: UNK, BID
     Route: 048
     Dates: start: 20190103, end: 20191011
  118. VITAMIN D NOS [Concomitant]
     Active Substance: VITAMIN D NOS
     Dosage: UNK, QD
     Route: 048
     Dates: start: 20190104
  119. VITAMIN D NOS [Concomitant]
     Active Substance: VITAMIN D NOS
     Dosage: UNK, QD
     Route: 048
     Dates: start: 20190104
  120. VITAMIN D NOS [Concomitant]
     Active Substance: VITAMIN D NOS
     Dosage: UNK, BID
     Route: 048
     Dates: start: 20190103, end: 20191011
  121. VITAMIN D NOS [Concomitant]
     Active Substance: VITAMIN D NOS
     Dosage: UNK, BID
     Route: 048
     Dates: start: 20190103
  122. CALCIUM CARBONATE [Concomitant]
     Active Substance: CALCIUM CARBONATE
     Indication: Malnutrition
     Dosage: UNK, BID
     Route: 048
     Dates: start: 20190103, end: 20191011
  123. INFLUENZA VIRUS VACCINE [Concomitant]
     Active Substance: INFLUENZA VIRUS VACCINE
     Indication: Prophylaxis
     Dosage: 1 DOSAGE FORM (1 DOSAGE FORM (1 AMPULE, OD)
     Route: 065
     Dates: start: 20191112, end: 20191112
  124. INFLUENZA VIRUS VACCINE [Concomitant]
     Active Substance: INFLUENZA VIRUS VACCINE
     Dosage: UNK
     Route: 065
  125. FOLIC ACID [Concomitant]
     Active Substance: FOLIC ACID
     Indication: Anaemia
     Dosage: 5 MG, QD
     Route: 048
  126. FOLIC ACID [Concomitant]
     Active Substance: FOLIC ACID
     Dosage: 5 MG, QD
     Route: 048
  127. FOLIC ACID [Concomitant]
     Active Substance: FOLIC ACID
     Dosage: 5 MG, QD
     Route: 048
  128. FOLIC ACID [Concomitant]
     Active Substance: FOLIC ACID
     Dosage: 5 MG, QD
     Route: 048
  129. FOLIC ACID [Concomitant]
     Active Substance: FOLIC ACID
     Dosage: 5 MG, QD
     Route: 048
  130. CARBOHYDRATES\FATTY ACIDS\MINERALS\PROTEIN\VITAMINS [Concomitant]
     Active Substance: CARBOHYDRATES\FATTY ACIDS\MINERALS\PROTEIN\VITAMINS
     Indication: Malnutrition
     Dosage: UNK, QD
     Route: 048
     Dates: start: 20190102, end: 20191029
  131. CARBOHYDRATES\FATTY ACIDS\MINERALS\PROTEIN\VITAMINS [Concomitant]
     Active Substance: CARBOHYDRATES\FATTY ACIDS\MINERALS\PROTEIN\VITAMINS
     Dosage: UNK, BID
     Route: 048
     Dates: start: 20190103, end: 20191011
  132. CARBOHYDRATES\FATTY ACIDS\MINERALS\PROTEIN\VITAMINS [Concomitant]
     Active Substance: CARBOHYDRATES\FATTY ACIDS\MINERALS\PROTEIN\VITAMINS
     Dosage: 2 DOSAGE FORM
     Route: 048
     Dates: start: 20190103, end: 20191211
  133. CARBOHYDRATES\FATTY ACIDS\MINERALS\PROTEIN\VITAMINS [Concomitant]
     Active Substance: CARBOHYDRATES\FATTY ACIDS\MINERALS\PROTEIN\VITAMINS
     Dosage: UNK UNK, BID
     Route: 048
     Dates: start: 20190103, end: 20190111
  134. ZINC SULFATE [Concomitant]
     Active Substance: ZINC SULFATE
     Indication: Malnutrition
     Dosage: UNK, BID
     Route: 048
     Dates: start: 20190103, end: 20191011
  135. ZINC SULFATE [Concomitant]
     Active Substance: ZINC SULFATE
     Dosage: UNK
     Route: 065
  136. SULFAMETHOXAZOLE\TRIMETHOPRIM [Concomitant]
     Active Substance: SULFAMETHOXAZOLE\TRIMETHOPRIM
     Indication: Prophylaxis
     Dosage: 10 ML, QD
     Route: 048
     Dates: start: 20191011
  137. SULFAMETHOXAZOLE\TRIMETHOPRIM [Concomitant]
     Active Substance: SULFAMETHOXAZOLE\TRIMETHOPRIM
     Dosage: 20 MG, QD
     Route: 048
     Dates: start: 20190102, end: 20191015
  138. Decapeptyl [Concomitant]
     Indication: Prostate cancer
     Dosage: 45 MG, QD (45 MILLIGRAM, (1 DOSE YEARLY, 11.25 MG)
     Route: 065
     Dates: start: 20190515
  139. Decapeptyl [Concomitant]
     Dosage: 18.247 MG
     Route: 065
  140. Decapeptyl [Concomitant]
     Dosage: 45 MG, QD (45 MILLIGRAM, (1 DOSE YEARLY, 11.25 MG)
     Route: 065
     Dates: start: 20190515
  141. Decapeptyl [Concomitant]
     Dosage: UNK
     Route: 065
  142. Decapeptyl [Concomitant]
     Dosage: 45 MG, QD (45 MILLIGRAM, (1 DOSE YEARLY, 11.25 MG)
     Route: 065
     Dates: start: 20190515
  143. CHOLECALCIFEROL [Concomitant]
     Active Substance: CHOLECALCIFEROL
     Indication: Malnutrition
     Dosage: UNK, BID
     Route: 048
     Dates: start: 20190103, end: 20191011
  144. CHOLECALCIFEROL [Concomitant]
     Active Substance: CHOLECALCIFEROL
     Dosage: UNK, QD
     Route: 048
     Dates: start: 20191016, end: 20191029
  145. CHOLECALCIFEROL [Concomitant]
     Active Substance: CHOLECALCIFEROL
     Dosage: UNK, BID
     Route: 048
     Dates: start: 20190212, end: 20191015
  146. CHOLECALCIFEROL [Concomitant]
     Active Substance: CHOLECALCIFEROL
     Dosage: UNK, BID
     Route: 048
     Dates: start: 20190212, end: 20191015
  147. CHOLECALCIFEROL [Concomitant]
     Active Substance: CHOLECALCIFEROL
     Dosage: UNK, BID
     Route: 048
     Dates: start: 20190103, end: 20191011
  148. SODIUM FLUORIDE [Concomitant]
     Active Substance: SODIUM FLUORIDE
     Indication: Malnutrition
     Dosage: 90 ML, QD
     Route: 048
     Dates: start: 20190103
  149. SODIUM FLUORIDE [Concomitant]
     Active Substance: SODIUM FLUORIDE
     Dosage: UNK
     Route: 065
  150. SODIUM FLUORIDE [Concomitant]
     Active Substance: SODIUM FLUORIDE
     Dosage: 90 ML, QD
     Route: 048
     Dates: start: 20190103
  151. ZOLPIDEM [Concomitant]
     Active Substance: ZOLPIDEM TARTRATE
     Indication: Prophylaxis
     Dosage: 10 MG
     Route: 048
     Dates: start: 20180816, end: 20191029
  152. ZOLPIDEM [Concomitant]
     Active Substance: ZOLPIDEM TARTRATE
     Dosage: 10 MG
     Route: 048
     Dates: start: 20180819, end: 20191029
  153. ZOLPIDEM [Concomitant]
     Active Substance: ZOLPIDEM TARTRATE
     Dosage: 10 MG
     Route: 048
     Dates: start: 20180816, end: 20191029
  154. VALACYCLOVIR HYDROCHLORIDE [Concomitant]
     Active Substance: VALACYCLOVIR HYDROCHLORIDE
     Indication: Prophylaxis
     Dosage: 500 MG, QD
     Route: 048
     Dates: start: 20190817
  155. CHLORHEXIDINE [Concomitant]
     Active Substance: CHLORHEXIDINE
     Indication: Tongue coated
     Dosage: 10 ML, TID
     Route: 048
     Dates: start: 20191116, end: 20191220
  156. CHLORHEXIDINE [Concomitant]
     Active Substance: CHLORHEXIDINE
     Dosage: 30 DOSAGE FORM, TID
     Route: 048
     Dates: start: 20191116, end: 20191220
  157. CHLORHEXIDINE [Concomitant]
     Active Substance: CHLORHEXIDINE
     Dosage: 30 DOSAGE FORM, TID
     Route: 048
     Dates: start: 20191116, end: 20191220
  158. AMLODIPINE [Concomitant]
     Active Substance: AMLODIPINE BESYLATE
     Indication: Hypertension
     Dosage: 10 MG, QD
     Route: 048
     Dates: start: 20191204, end: 20191204
  159. AMLODIPINE [Concomitant]
     Active Substance: AMLODIPINE BESYLATE
     Dosage: 10 MG, QD
     Route: 048
     Dates: start: 20191204, end: 20191204
  160. AMLODIPINE [Concomitant]
     Active Substance: AMLODIPINE BESYLATE
     Dosage: 10 MG, QD
     Route: 048
  161. AMLODIPINE [Concomitant]
     Active Substance: AMLODIPINE BESYLATE
     Dosage: 10 MG, QD
     Route: 048
     Dates: end: 20191204
  162. AMLODIPINE [Concomitant]
     Active Substance: AMLODIPINE BESYLATE
     Dosage: 10 MG, QD
     Route: 048
     Dates: end: 20191204
  163. AMLODIPINE [Concomitant]
     Active Substance: AMLODIPINE BESYLATE
     Dosage: 10 MG, QD
     Route: 048
  164. TINZAPARIN [Concomitant]
     Active Substance: TINZAPARIN
     Indication: Prophylaxis
     Dosage: 10000 IU (10000 INTERNATIONAL UNIT, OD)
     Route: 058
     Dates: start: 20190110
  165. TINZAPARIN [Concomitant]
     Active Substance: TINZAPARIN
     Dosage: UNK, QD
     Route: 058
     Dates: start: 20190110
  166. CUPRIC SULFATE ANHYDROUS [Concomitant]
     Active Substance: CUPRIC SULFATE ANHYDROUS
     Indication: Malnutrition
     Dosage: UNK, BID
     Route: 048
     Dates: start: 20190103, end: 20191011
  167. CUPRIC SULFATE ANHYDROUS [Concomitant]
     Active Substance: CUPRIC SULFATE ANHYDROUS
     Dosage: UNK
     Route: 065
  168. CUPRIC SULFATE ANHYDROUS [Concomitant]
     Active Substance: CUPRIC SULFATE ANHYDROUS
     Dosage: 1 DOSAGE FORM, QD
     Route: 048
     Dates: start: 20190103, end: 20190111
  169. MANGANESE SULFATE [Concomitant]
     Active Substance: MANGANESE SULFATE
     Indication: Malnutrition
     Dosage: UNK, BID
     Route: 048
     Dates: start: 20190103, end: 20191011
  170. MANGANESE SULFATE [Concomitant]
     Active Substance: MANGANESE SULFATE
     Dosage: UNK
     Route: 065
  171. MANGANESE SULFATE [Concomitant]
     Active Substance: MANGANESE SULFATE
     Dosage: UNK, BID
     Route: 048
     Dates: start: 20190103, end: 20191011
  172. METOPROLOL [Concomitant]
     Active Substance: METOPROLOL
     Indication: Hypertension
     Dosage: 50 MG, QD
     Route: 048
  173. METOPROLOL [Concomitant]
     Active Substance: METOPROLOL
     Dosage: 50 MG, QD
     Route: 048
  174. METOPROLOL [Concomitant]
     Active Substance: METOPROLOL
     Dosage: 50 MILLIGRAM, BID
     Route: 048
  175. METOPROLOL [Concomitant]
     Active Substance: METOPROLOL
     Dosage: 25 MG
     Route: 048
  176. METOPROLOL [Concomitant]
     Active Substance: METOPROLOL
     Dosage: 25 MG
     Route: 048
  177. METOPROLOL [Concomitant]
     Active Substance: METOPROLOL
     Dosage: 50 MG, QD
     Route: 048
  178. METOPROLOL [Concomitant]
     Active Substance: METOPROLOL
     Dosage: 50 MG, QD
     Route: 048
  179. METOPROLOL [Concomitant]
     Active Substance: METOPROLOL
     Dosage: 25 MILLIGRAM, BID (1 DOSE 12 HOURS)
     Route: 048
  180. METOPROLOL [Concomitant]
     Active Substance: METOPROLOL
     Dosage: 25 MG
     Route: 048
  181. BUDESONIDE [Concomitant]
     Active Substance: BUDESONIDE
     Indication: Chronic obstructive pulmonary disease
     Dosage: 1 MG, QD
     Route: 048
     Dates: start: 20200107
  182. MINERALS\VITAMINS [Concomitant]
     Active Substance: MINERALS\VITAMINS
     Indication: Prophylaxis
     Dosage: 1 DOSAGE FORM, QD
     Route: 048
     Dates: start: 20190104
  183. MINERALS\VITAMINS [Concomitant]
     Active Substance: MINERALS\VITAMINS
     Dosage: 1 DOSAGE FORM, QD
     Route: 048
     Dates: start: 20190104
  184. COTRIMOXAZOLE [Concomitant]
     Active Substance: SULFAMETHOXAZOLE\TRIMETHOPRIM
     Indication: Antifungal prophylaxis
     Dosage: 480 MG, QD
     Route: 048
     Dates: start: 20180817, end: 20190115
  185. COTRIMOXAZOLE [Concomitant]
     Active Substance: SULFAMETHOXAZOLE\TRIMETHOPRIM
     Dosage: 480 MG, QD
     Route: 048
     Dates: start: 20180817, end: 20191015
  186. CALCITONIN SALMON [Concomitant]
     Active Substance: CALCITONIN SALMON
     Indication: Malnutrition
     Dosage: UNK, BID
     Route: 048
     Dates: start: 20190103, end: 20191011
  187. CALCITONIN SALMON [Concomitant]
     Active Substance: CALCITONIN SALMON
     Dosage: UNK
     Route: 065
  188. CALCITONIN SALMON [Concomitant]
     Active Substance: CALCITONIN SALMON
     Dosage: UNK, BID
     Route: 048
     Dates: start: 20190103, end: 20191011
  189. CALCITONIN SALMON [Concomitant]
     Active Substance: CALCITONIN SALMON
     Dosage: UNK, QD
     Route: 048
     Dates: start: 20190120, end: 20191029
  190. CALCIUM\CHOLECALCIFEROL [Concomitant]
     Active Substance: CALCIUM\CHOLECALCIFEROL
     Indication: Prophylaxis
     Dosage: 2 DOSAGE FORM, QD
     Route: 048
     Dates: start: 20191016, end: 20191029
  191. CALCIUM\CHOLECALCIFEROL [Concomitant]
     Active Substance: CALCIUM\CHOLECALCIFEROL
     Indication: Bone disorder
     Dosage: 4 DOSAGE FORM, BID
     Route: 048
     Dates: start: 20191003, end: 20191011
  192. CALCIUM\CHOLECALCIFEROL [Concomitant]
     Active Substance: CALCIUM\CHOLECALCIFEROL
     Dosage: 4 DOSAGE FORM, QD
     Route: 048
     Dates: start: 20190212, end: 20191015
  193. CALCIUM\CHOLECALCIFEROL [Concomitant]
     Active Substance: CALCIUM\CHOLECALCIFEROL
     Dosage: 2 DOSAGE FORM, TID
     Route: 048
     Dates: start: 20190103, end: 20190211
  194. CALCIUM\CHOLECALCIFEROL [Concomitant]
     Active Substance: CALCIUM\CHOLECALCIFEROL
     Dosage: 2 DOSAGE FORM, BID
     Route: 048
     Dates: start: 20190103, end: 20191011
  195. CALCIUM\CHOLECALCIFEROL [Concomitant]
     Active Substance: CALCIUM\CHOLECALCIFEROL
     Dosage: 8 DOSAGE FORM, QD
     Route: 048
     Dates: start: 20190103, end: 20191011
  196. CALCIUM\CHOLECALCIFEROL [Concomitant]
     Active Substance: CALCIUM\CHOLECALCIFEROL
     Dosage: 4 DOSAGE FORM, BID
     Route: 048
     Dates: start: 20190103, end: 20191011
  197. CALCIUM\CHOLECALCIFEROL [Concomitant]
     Active Substance: CALCIUM\CHOLECALCIFEROL
     Dosage: UNK, BID
     Route: 048
     Dates: start: 20190103, end: 20190211
  198. CALCIUM\CHOLECALCIFEROL [Concomitant]
     Active Substance: CALCIUM\CHOLECALCIFEROL
     Dosage: UNK
     Route: 048
     Dates: start: 20190212, end: 20191015
  199. CALCIUM\CHOLECALCIFEROL [Concomitant]
     Active Substance: CALCIUM\CHOLECALCIFEROL
     Dosage: 2 DOSAGE FORM, BID, 2 TABLET (4 DOSAGE FORM, QD)
     Route: 048
     Dates: start: 20190212, end: 20191015
  200. CALCIUM\CHOLECALCIFEROL [Concomitant]
     Active Substance: CALCIUM\CHOLECALCIFEROL
     Dosage: 6 DOSAGE FORM, QD (2 DOSAGE FORM, TID, 2 TABLET)
     Route: 048
     Dates: start: 20190103, end: 20190211
  201. CALCIUM\CHOLECALCIFEROL [Concomitant]
     Active Substance: CALCIUM\CHOLECALCIFEROL
     Dosage: UNK
     Route: 048
     Dates: start: 20191016, end: 20191029
  202. CALCIUM\CHOLECALCIFEROL [Concomitant]
     Active Substance: CALCIUM\CHOLECALCIFEROL
     Dosage: UNK UNK, QD
     Route: 048
     Dates: start: 20190103, end: 20190211
  203. CALCIUM\CHOLECALCIFEROL [Concomitant]
     Active Substance: CALCIUM\CHOLECALCIFEROL
     Dosage: 2 DOSAGE FORM, OD, 2 TABLET
     Route: 048
     Dates: start: 20191016, end: 20191029
  204. CALCIUM\CHOLECALCIFEROL [Concomitant]
     Active Substance: CALCIUM\CHOLECALCIFEROL
     Dosage: 18 UNK
     Route: 048
     Dates: start: 20190103, end: 20190211
  205. CALCIUM\CHOLECALCIFEROL [Concomitant]
     Active Substance: CALCIUM\CHOLECALCIFEROL
     Dosage: 18 UNK
     Route: 048
     Dates: start: 20190103, end: 20190211
  206. CALCIUM\CHOLECALCIFEROL [Concomitant]
     Active Substance: CALCIUM\CHOLECALCIFEROL
     Dosage: DOSAGE FORM, QD (2 TABLET)
     Route: 048
     Dates: start: 20190103, end: 20190211
  207. MAGNESIUM OXIDE [Concomitant]
     Active Substance: MAGNESIUM OXIDE
     Indication: Malnutrition
     Dosage: UNK, BID
     Route: 048
     Dates: start: 20190103, end: 20191011
  208. MAGNESIUM OXIDE [Concomitant]
     Active Substance: MAGNESIUM OXIDE
     Dosage: UNK
     Route: 065
  209. MAGNESIUM OXIDE [Concomitant]
     Active Substance: MAGNESIUM OXIDE
     Dosage: UNK, QD
     Route: 048
     Dates: start: 20191003, end: 20191011
  210. MAGNESIUM OXIDE [Concomitant]
     Active Substance: MAGNESIUM OXIDE
     Dosage: UNK
     Route: 048
  211. MAGNESIUM OXIDE [Concomitant]
     Active Substance: MAGNESIUM OXIDE
     Dosage: UNK
     Route: 065
  212. MAGNESIUM OXIDE [Concomitant]
     Active Substance: MAGNESIUM OXIDE
     Dosage: UNK, BID
     Route: 048
     Dates: start: 20190103, end: 20191011
  213. ZOLEDRONIC ACID [Concomitant]
     Active Substance: ZOLEDRONIC ACID
     Indication: Prophylaxis
     Dosage: 4 MG, QD
     Route: 041
     Dates: start: 20181106
  214. ZOLEDRONIC ACID [Concomitant]
     Active Substance: ZOLEDRONIC ACID
     Dosage: 4 MILLIGRAM IN 1 MONTH
     Route: 041
     Dates: start: 20181106
  215. ZOLEDRONIC ACID [Concomitant]
     Active Substance: ZOLEDRONIC ACID
     Dosage: 4 MG, QD
     Route: 041
     Dates: start: 20181106
  216. ZOLEDRONIC ACID [Concomitant]
     Active Substance: ZOLEDRONIC ACID
     Dosage: 4 MG
     Route: 041
     Dates: start: 20181106
  217. CALCIUM ACETATE [Concomitant]
     Active Substance: CALCIUM ACETATE
     Indication: Malnutrition
     Dosage: UNK, QD
     Route: 048
     Dates: start: 20191020, end: 20191029
  218. CALCIUM ACETATE [Concomitant]
     Active Substance: CALCIUM ACETATE
     Dosage: UNK, BID
     Route: 048
     Dates: start: 20191003, end: 20191011
  219. CALCITONIN [Concomitant]
     Active Substance: CALCITONIN
     Indication: Malnutrition
     Dosage: UNK, BID
     Route: 048
     Dates: start: 20190103, end: 20191011
  220. CALCITONIN [Concomitant]
     Active Substance: CALCITONIN
     Dosage: UNK, QD
     Route: 048
     Dates: start: 20190103, end: 20191011
  221. CALCITONIN [Concomitant]
     Active Substance: CALCITONIN
     Dosage: UNK, QD
     Route: 048
     Dates: start: 20190103, end: 20191011
  222. CYCLOPHOSPHAMIDE [Concomitant]
     Active Substance: CYCLOPHOSPHAMIDE
     Indication: Plasma cell myeloma
     Dosage: 4 MILLIGRAM, QW
     Route: 048
     Dates: start: 20191213, end: 20191226
  223. CYCLOPHOSPHAMIDE [Concomitant]
     Active Substance: CYCLOPHOSPHAMIDE
     Dosage: UNK
     Route: 065
     Dates: end: 2019
  224. CYCLOPHOSPHAMIDE [Concomitant]
     Active Substance: CYCLOPHOSPHAMIDE
     Dosage: 300 MG, QD
     Route: 048
     Dates: start: 20190907, end: 20190907
  225. CYCLOPHOSPHAMIDE [Concomitant]
     Active Substance: CYCLOPHOSPHAMIDE
     Dosage: 300 MG, QD
     Route: 048
     Dates: start: 20191213, end: 20191228
  226. CYCLOPHOSPHAMIDE [Concomitant]
     Active Substance: CYCLOPHOSPHAMIDE
     Dosage: 300 MG, QD
     Route: 048
     Dates: start: 20190907, end: 20191010
  227. CYCLOPHOSPHAMIDE [Concomitant]
     Active Substance: CYCLOPHOSPHAMIDE
     Dosage: 11100 MG
     Route: 065
     Dates: start: 20191213
  228. CYCLOPHOSPHAMIDE [Concomitant]
     Active Substance: CYCLOPHOSPHAMIDE
     Dosage: 7800 MG
     Route: 065
     Dates: start: 20191213
  229. CYCLOPHOSPHAMIDE [Concomitant]
     Active Substance: CYCLOPHOSPHAMIDE
     Dosage: 36.6 MG
     Route: 065
     Dates: start: 20191213
  230. CYCLOPHOSPHAMIDE [Concomitant]
     Active Substance: CYCLOPHOSPHAMIDE
     Dosage: UNK
     Route: 065
     Dates: end: 2019
  231. CYCLOPHOSPHAMIDE [Concomitant]
     Active Substance: CYCLOPHOSPHAMIDE
     Dosage: 300 MG, QD
     Route: 048
     Dates: start: 2019
  232. CYCLOPHOSPHAMIDE [Concomitant]
     Active Substance: CYCLOPHOSPHAMIDE
     Dosage: 300 MG, QD
     Route: 048
     Dates: start: 2019
  233. CYCLOPHOSPHAMIDE [Concomitant]
     Active Substance: CYCLOPHOSPHAMIDE
     Dosage: UNK
     Route: 065
     Dates: start: 2019
  234. CYCLOPHOSPHAMIDE [Concomitant]
     Active Substance: CYCLOPHOSPHAMIDE
     Dosage: 300 MG, QD
     Route: 048
  235. CYCLOPHOSPHAMIDE [Concomitant]
     Active Substance: CYCLOPHOSPHAMIDE
     Dosage: UNK
     Route: 065
     Dates: start: 2019
  236. CYCLOPHOSPHAMIDE [Concomitant]
     Active Substance: CYCLOPHOSPHAMIDE
     Dosage: 36.6 MG
     Route: 065
     Dates: start: 2019
  237. CYCLOPHOSPHAMIDE [Concomitant]
     Active Substance: CYCLOPHOSPHAMIDE
     Dosage: UNK
     Route: 065
     Dates: start: 20191212
  238. CYCLOPHOSPHAMIDE [Concomitant]
     Active Substance: CYCLOPHOSPHAMIDE
     Dosage: UNK
     Route: 065
     Dates: start: 2019
  239. CYCLOPHOSPHAMIDE [Concomitant]
     Active Substance: CYCLOPHOSPHAMIDE
     Dosage: UNK
     Route: 065
  240. CYCLOPHOSPHAMIDE [Concomitant]
     Active Substance: CYCLOPHOSPHAMIDE
     Dosage: UNK
  241. CYCLOPHOSPHAMIDE [Concomitant]
     Active Substance: CYCLOPHOSPHAMIDE
     Dosage: 300 MG
     Route: 048
     Dates: start: 2019
  242. CYCLOPHOSPHAMIDE [Concomitant]
     Active Substance: CYCLOPHOSPHAMIDE
     Dosage: 300 UNK
     Route: 048
     Dates: start: 20191010
  243. CYCLOPHOSPHAMIDE [Concomitant]
     Active Substance: CYCLOPHOSPHAMIDE
     Dosage: UNK
     Route: 065
  244. CYCLOPHOSPHAMIDE [Concomitant]
     Active Substance: CYCLOPHOSPHAMIDE
     Dosage: 36.6 MG
     Route: 065
     Dates: start: 20191213
  245. CYCLOPHOSPHAMIDE [Concomitant]
     Active Substance: CYCLOPHOSPHAMIDE
     Dosage: 36.6 MG
     Route: 065
     Dates: start: 20191213
  246. CYCLOPHOSPHAMIDE [Concomitant]
     Active Substance: CYCLOPHOSPHAMIDE
     Dosage: 11100 MG
     Route: 065
     Dates: start: 20191213
  247. CYCLOPHOSPHAMIDE [Concomitant]
     Active Substance: CYCLOPHOSPHAMIDE
     Dosage: 300 MG, QD
     Route: 048
     Dates: start: 20191213
  248. PENTAZOCINE LACTATE [Concomitant]
     Active Substance: PENTAZOCINE LACTATE
     Indication: Malnutrition
     Dosage: UNK
     Route: 065
     Dates: start: 20191020, end: 20191029
  249. PENTAZOCINE LACTATE [Concomitant]
     Active Substance: PENTAZOCINE LACTATE
     Dosage: UNK, QD
     Route: 048
     Dates: start: 20191020
  250. PENTAZOCINE LACTATE [Concomitant]
     Active Substance: PENTAZOCINE LACTATE
     Dosage: UNK
     Route: 048
     Dates: start: 20191020, end: 20191020
  251. PENTAZOCINE LACTATE [Concomitant]
     Active Substance: PENTAZOCINE LACTATE
     Dosage: UNK
     Route: 065
     Dates: start: 20191003, end: 20191011
  252. PENTAZOCINE LACTATE [Concomitant]
     Active Substance: PENTAZOCINE LACTATE
     Dosage: UNK, BID
     Route: 065
     Dates: start: 20191003, end: 20191011
  253. PENTAZOCINE LACTATE [Concomitant]
     Active Substance: PENTAZOCINE LACTATE
     Dosage: UNK
     Route: 048
     Dates: start: 20191020, end: 20191020
  254. PENTAZOCINE LACTATE [Concomitant]
     Active Substance: PENTAZOCINE LACTATE
     Dosage: UNK
     Route: 048
     Dates: start: 20191020, end: 20191020
  255. PENTAZOCINE LACTATE [Concomitant]
     Active Substance: PENTAZOCINE LACTATE
     Dosage: UNK, BID
     Route: 065
     Dates: start: 20191003, end: 20191011
  256. PENTAZOCINE LACTATE [Concomitant]
     Active Substance: PENTAZOCINE LACTATE
     Dosage: 4.5 G
     Route: 042
     Dates: start: 20190106, end: 20190110
  257. MAGNESIUM SULFATE [Concomitant]
     Active Substance: MAGNESIUM SULFATE
     Indication: Malnutrition
     Dosage: UNK
     Route: 065
  258. MAGNESIUM SULFATE [Concomitant]
     Active Substance: MAGNESIUM SULFATE
     Dosage: UNK, QD
     Route: 048
     Dates: start: 20190103, end: 20191011
  259. Solpadol [Concomitant]
     Indication: Product used for unknown indication
     Dosage: UNK
     Route: 048
  260. AUGMENTIN [Concomitant]
     Active Substance: AMOXICILLIN\CLAVULANATE POTASSIUM
     Indication: Product used for unknown indication
     Dosage: 1.2 G
     Route: 042
     Dates: start: 20190102, end: 20190103
  261. AUGMENTIN [Concomitant]
     Active Substance: AMOXICILLIN\CLAVULANATE POTASSIUM
     Dosage: 625 MG
     Route: 048
     Dates: start: 20190103, end: 20190106
  262. THIAMINE [Concomitant]
     Active Substance: THIAMINE
     Indication: Product used for unknown indication
     Dosage: 300 MG
     Route: 048
     Dates: start: 20191105, end: 20191112
  263. CLARITHROMYCIN [Concomitant]
     Active Substance: CLARITHROMYCIN
     Indication: Product used for unknown indication
     Dosage: 500 MG
     Route: 048
     Dates: start: 20190106, end: 20190109
  264. DOXYCYCLINE [Concomitant]
     Active Substance: DOXYCYCLINE
     Indication: Product used for unknown indication
     Dosage: 200 MILLIGRAM, BID
     Route: 048
     Dates: start: 20190109, end: 20190114
  265. ASPIRIN [Concomitant]
     Active Substance: ASPIRIN
     Indication: Prophylaxis
     Dosage: 75 MG, QD
     Route: 048
  266. ASPIRIN [Concomitant]
     Active Substance: ASPIRIN
     Indication: Anaemia
     Dosage: 75 MILLILITER 30 ML, QD (30 MILLILITER)
     Route: 048
  267. ASPIRIN [Concomitant]
     Active Substance: ASPIRIN
     Dosage: 75 MG, QD
     Route: 048
  268. ASPIRIN [Concomitant]
     Active Substance: ASPIRIN
     Dosage: 75 MG, QD
     Route: 048
  269. ENOXAPARIN SODIUM [Concomitant]
     Active Substance: ENOXAPARIN SODIUM
     Indication: Product used for unknown indication
     Dosage: 40 MG, QD
     Route: 048
     Dates: start: 20190103, end: 20190109
  270. FORTICAL [Concomitant]
     Active Substance: CALCITONIN SALMON
     Indication: Product used for unknown indication
     Dosage: UNK
     Route: 065
  271. PIPERACILLIN SODIUM\TAZOBACTAM SODIUM [Concomitant]
     Active Substance: PIPERACILLIN SODIUM\TAZOBACTAM SODIUM
     Indication: Product used for unknown indication
     Dosage: 4.5 GRAM, QD
     Route: 042
     Dates: start: 20190106, end: 20190110
  272. DIETARY SUPPLEMENT [Concomitant]
     Active Substance: DIETARY SUPPLEMENT
     Indication: Malnutrition
     Dosage: UNK
     Route: 048
     Dates: start: 20190102, end: 20191029
  273. DIETARY SUPPLEMENT [Concomitant]
     Active Substance: DIETARY SUPPLEMENT
     Dosage: UNK
     Route: 048
     Dates: start: 20190103, end: 20191111
  274. UNSPECIFIED INGREDIENT [Concomitant]
     Active Substance: UNSPECIFIED INGREDIENT
     Indication: Product used for unknown indication
     Dosage: UNK
     Route: 048
     Dates: start: 20190107, end: 20190112
  275. INNOHEP [Concomitant]
     Active Substance: TINZAPARIN SODIUM
     Indication: Prophylaxis
     Dosage: 10000 INTERNATIONAL UNIT, OD
     Route: 058
     Dates: start: 20191010
  276. Fortal [Concomitant]
     Indication: Malnutrition
     Dosage: UNK
     Route: 048
     Dates: start: 20191003, end: 20191011
  277. Fortal [Concomitant]
     Dosage: UNK
     Route: 048
     Dates: start: 20191020, end: 20191029
  278. Altraplen compact [Concomitant]
     Indication: Malnutrition
     Dosage: UNK
     Route: 048
     Dates: start: 20191117

REACTIONS (11)
  - Intentional product use issue [Fatal]
  - COVID-19 [Fatal]
  - Death [Fatal]
  - Pulmonary embolism [Fatal]
  - Respiratory tract infection [Fatal]
  - Platelet count decreased [Fatal]
  - Thrombocytopenia [Fatal]
  - Respiratory tract infection viral [Fatal]
  - Respiratory tract infection bacterial [Fatal]
  - Anaemia [Recovered/Resolved]
  - Neutropenia [Recovered/Resolved]

NARRATIVE: CASE EVENT DATE: 20190116
